FAERS Safety Report 20449417 (Version 1)
Quarter: 2022Q1

REPORT INFORMATION
  Report Type: Spontaneous
  Country: US (occurrence: US)
  Receive Date: 20220209
  Receipt Date: 20220209
  Transmission Date: 20220423
  Serious: Yes (Other)
  Sender: FDA-Public Use
  Company Number: US-SANOFI-00956900

PATIENT
  Age: 71 Year
  Sex: Male

DRUGS (1)
  1. LANTUS SOLOSTAR [Suspect]
     Active Substance: INSULIN GLARGINE
     Dosage: 40 U

REACTIONS (5)
  - Cardiac failure congestive [Unknown]
  - Diabetes mellitus [Unknown]
  - Hypertension [Unknown]
  - Stress [Unknown]
  - Cardiac operation [Unknown]
